FAERS Safety Report 10638071 (Version 5)
Quarter: 2015Q3

REPORT INFORMATION
  Report Type: Spontaneous
  Country: US (occurrence: US)
  Receive Date: 20141208
  Receipt Date: 20150715
  Transmission Date: 20151125
  Serious: No
  Sender: FDA-Public Use
  Company Number: US-009507513-1110USA03596

PATIENT
  Sex: Male
  Weight: 97.52 kg

DRUGS (2)
  1. FINASTERIDE. [Suspect]
     Active Substance: FINASTERIDE
     Indication: ALOPECIA
     Dosage: 5 MG QD
     Route: 048
     Dates: start: 2001, end: 200110
  2. PROPECIA [Suspect]
     Active Substance: FINASTERIDE
     Indication: ALOPECIA
     Dosage: 5 MG, QD
     Route: 048
     Dates: start: 2001, end: 200110

REACTIONS (36)
  - Overdose [Unknown]
  - Orgasm abnormal [Unknown]
  - Nasopharyngitis [Unknown]
  - Eye pain [Unknown]
  - Abdominal pain [Unknown]
  - Semen volume decreased [Unknown]
  - Sleep apnoea syndrome [Unknown]
  - Cognitive disorder [Unknown]
  - Psychomotor hyperactivity [Unknown]
  - Anxiety [Not Recovered/Not Resolved]
  - Tremor [Unknown]
  - Drug administration error [Unknown]
  - Erectile dysfunction [Unknown]
  - Semen liquefaction [Unknown]
  - Back pain [Unknown]
  - Radiculopathy [Unknown]
  - Dyspnoea [Unknown]
  - Poor quality sleep [Not Recovered/Not Resolved]
  - Blood 1,25-dihydroxycholecalciferol increased [Unknown]
  - Lethargy [Recovering/Resolving]
  - Hypoaesthesia [Unknown]
  - Disturbance in attention [Unknown]
  - Hypogonadism [Not Recovered/Not Resolved]
  - Nipple pain [Unknown]
  - Thirst [Unknown]
  - Sexual dysfunction [Not Recovered/Not Resolved]
  - Testicular pain [Unknown]
  - Bundle branch block right [Unknown]
  - Arthralgia [Unknown]
  - Fatigue [Unknown]
  - Knee operation [Unknown]
  - Vision blurred [Unknown]
  - Meniscus injury [Unknown]
  - Sinus disorder [Unknown]
  - Loss of libido [Recovering/Resolving]
  - Depression [Not Recovered/Not Resolved]

NARRATIVE: CASE EVENT DATE: 2001
